FAERS Safety Report 7588000-4 (Version None)
Quarter: 2011Q3

REPORT INFORMATION
  Report Type: 
  Country: None (occurrence: None)
  Receive Date: 20110705
  Receipt Date: 20110628
  Transmission Date: 20111222
  Serious: No
  Sender: FDA-Public Use
  Company Number: US-PFIZER INC-2011144656

PATIENT
  Age: 44 Year
  Sex: Female
  Weight: 52.608 kg

DRUGS (3)
  1. NORVASC [Suspect]
     Dosage: UNK
  2. CALCIUM [Concomitant]
     Dosage: UNK
  3. NORVASC [Suspect]
     Indication: HYPERTENSION
     Dosage: 5 MG, 1X/DAY
     Route: 048
     Dates: start: 20110601

REACTIONS (1)
  - GASTROOESOPHAGEAL REFLUX DISEASE [None]
